FAERS Safety Report 8472772 (Version 2)
Quarter: 2014Q2

REPORT INFORMATION
  Report Type: Spontaneous
  Country: US (occurrence: US)
  Receive Date: 20120322
  Receipt Date: 20140508
  Transmission Date: 20141212
  Serious: Yes (Life-Threatening, Hospitalization)
  Sender: FDA-Public Use
  Company Number: US-BAYER-2012-027423

PATIENT
  Age: 38 Year
  Sex: Female

DRUGS (5)
  1. YAZ [Suspect]
  2. YASMIN [Suspect]
  3. OCELLA [Suspect]
  4. FISH OIL [Concomitant]
     Dosage: DAILY
  5. CALCIUM [Concomitant]
     Dosage: DAILY

REACTIONS (6)
  - Deep vein thrombosis [Recovered/Resolved]
  - Injury [None]
  - Pain [Recovered/Resolved]
  - General physical health deterioration [None]
  - Anxiety [None]
  - Anhedonia [None]
